FAERS Safety Report 14629521 (Version 1)
Quarter: 2018Q1

REPORT INFORMATION
  Report Type: Spontaneous
  Country: US (occurrence: US)
  Receive Date: 20180312
  Receipt Date: 20180312
  Transmission Date: 20180509
  Serious: Yes (Other)
  Sender: FDA-Public Use
  Company Number: None

PATIENT
  Age: 29 Year
  Sex: Female
  Weight: 65.25 kg

DRUGS (1)
  1. CREST PRO-HEALTH CLINICAL [Suspect]
     Active Substance: CETYLPYRIDINIUM CHLORIDE
     Indication: DENTAL DISORDER PROPHYLAXIS
     Dosage: ?          QUANTITY:20 ML;?
     Dates: start: 20180226, end: 20180227

REACTIONS (6)
  - Oral discomfort [None]
  - Chemical burn of gastrointestinal tract [None]
  - Tongue discomfort [None]
  - Glossitis [None]
  - Oral mucosal exfoliation [None]
  - Gingival blister [None]

NARRATIVE: CASE EVENT DATE: 20180227
